FAERS Safety Report 7005265-8 (Version None)
Quarter: 2010Q3

REPORT INFORMATION
  Report Type: 
  Country: None (occurrence: None)
  Receive Date: 20100921
  Receipt Date: 20100916
  Transmission Date: 20110219
  Serious: Yes (Life-Threatening, Hospitalization)
  Sender: FDA-Public Use
  Company Number: PHHY2010EC62107

PATIENT
  Age: 69 Year
  Sex: Female

DRUGS (3)
  1. EXELON [Suspect]
     Indication: DEMENTIA ALZHEIMER'S TYPE
     Dosage: ONE 4.5MG/5CM PATCH DAILY
     Route: 062
     Dates: start: 20100601, end: 20100615
  2. EXELON [Suspect]
     Dosage: ONE 4.5MG/5CM PATCH DAILY
     Route: 062
     Dates: start: 20100715
  3. EUTIROX [Concomitant]
     Indication: HYPOTHYROIDISM
     Dosage: 1 MG, UNK

REACTIONS (2)
  - ELECTRICAL BURN [None]
  - THERMAL BURN [None]
